FAERS Safety Report 6157495-5 (Version None)
Quarter: 2009Q2

REPORT INFORMATION
  Report Type: 
  Country: None (occurrence: None)
  Receive Date: 20090416
  Receipt Date: 20090416
  Transmission Date: 20091009
  Serious: Yes (Hospitalization)
  Sender: FDA-Public Use
  Company Number: PHHO2001IT10390

PATIENT
  Weight: 70 kg

DRUGS (5)
  1. CGS 20267 T30748+ [Suspect]
     Indication: BREAST CANCER
     Dosage: 2.5 MG, QD
     Route: 048
     Dates: start: 20010608, end: 20011128
  2. LANOXIN [Concomitant]
     Indication: CARDIOMYOPATHY
  3. CORDARONE [Concomitant]
     Indication: CARDIOMYOPATHY
  4. LASIX [Concomitant]
     Indication: CARDIOMYOPATHY
  5. LOSARTAN POTASSIUM [Concomitant]

REACTIONS (2)
  - CONGESTIVE CARDIOMYOPATHY [None]
  - DYSPNOEA [None]
